FAERS Safety Report 5818315-9 (Version None)
Quarter: 2008Q3

REPORT INFORMATION
  Report Type: 
  Country: None (occurrence: None)
  Receive Date: 20080722
  Receipt Date: 20080710
  Transmission Date: 20090109
  Serious: Yes (Other)
  Sender: FDA-Public Use
  Company Number: PH-PFIZER INC-2008052459

PATIENT
  Age: 54 Year
  Sex: Male

DRUGS (6)
  1. CHANTIX [Suspect]
     Indication: SMOKING CESSATION THERAPY
     Route: 048
     Dates: start: 20080510, end: 20080616
  2. SOLOSA [Concomitant]
  3. METFORMIN HCL [Concomitant]
  4. ASPILETS [Concomitant]
  5. CARBOCISTEINE [Concomitant]
     Indication: COUGH
  6. AUGMENTIN '125' [Concomitant]
     Indication: EPISTAXIS

REACTIONS (5)
  - ANOSMIA [None]
  - DYSGEUSIA [None]
  - FEELING ABNORMAL [None]
  - REFLUX LARYNGITIS [None]
  - SINUSITIS [None]
